FAERS Safety Report 18414755 (Version 1)
Quarter: 2020Q4

REPORT INFORMATION
  Report Type: Spontaneous
  Country: US (occurrence: US)
  Receive Date: 20201022
  Receipt Date: 20201022
  Transmission Date: 20210114
  Serious: Yes (Hospitalization)
  Sender: FDA-Public Use
  Company Number: None

PATIENT
  Age: 73 Year
  Sex: Female

DRUGS (14)
  1. TADALAFIL. [Concomitant]
     Active Substance: TADALAFIL
  2. FLONASE [Concomitant]
     Active Substance: FLUTICASONE PROPIONATE
  3. ALLOPURINOL. [Concomitant]
     Active Substance: ALLOPURINOL
  4. POTASSIUM CHLORIDE. [Concomitant]
     Active Substance: POTASSIUM CHLORIDE
  5. AMBRISENTAN 10MG TABLETS 30/B0: 10MG [Suspect]
     Active Substance: AMBRISENTAN
     Indication: PULMONARY ARTERIAL HYPERTENSION
     Route: 048
     Dates: start: 201607
  6. ELIQUIS [Concomitant]
     Active Substance: APIXABAN
  7. FERROUS SULFATE. [Concomitant]
     Active Substance: FERROUS SULFATE
  8. TORSEMIDE. [Concomitant]
     Active Substance: TORSEMIDE
  9. ENTRESTO [Concomitant]
     Active Substance: SACUBITRIL\VALSARTAN
  10. ACETAMINOPHEN. [Concomitant]
     Active Substance: ACETAMINOPHEN
  11. ATORVASTATIN [Concomitant]
     Active Substance: ATORVASTATIN
  12. METOPROLOL. [Concomitant]
     Active Substance: METOPROLOL
  13. VENTOLIN HFA [Concomitant]
     Active Substance: ALBUTEROL SULFATE
  14. MVI [Concomitant]
     Active Substance: VITAMINS

REACTIONS (3)
  - Hypervolaemia [None]
  - Acute left ventricular failure [None]
  - Cardiac failure acute [None]

NARRATIVE: CASE EVENT DATE: 20200928
